FAERS Safety Report 19257003 (Version 2)
Quarter: 2021Q2

REPORT INFORMATION
  Report Type: Spontaneous
  Country: US (occurrence: US)
  Receive Date: 20210514
  Receipt Date: 20210515
  Transmission Date: 20210717
  Serious: No
  Sender: FDA-Public Use
  Company Number: US-JNJFOC-20210501906

PATIENT
  Sex: Female

DRUGS (2)
  1. WOMENS ROGAINE UNSCENTED [Suspect]
     Active Substance: MINOXIDIL
     Indication: MADAROSIS
     Route: 061
  2. WOMENS ROGAINE UNSCENTED [Suspect]
     Active Substance: MINOXIDIL
     Indication: LICHEN PLANOPILARIS

REACTIONS (6)
  - Alopecia [Recovered/Resolved]
  - Madarosis [Recovered/Resolved]
  - Product use in unapproved indication [Unknown]
  - Product administered at inappropriate site [Unknown]
  - Depression [Recovered/Resolved]
  - Off label use [Unknown]
